FAERS Safety Report 7908445-X (Version None)
Quarter: 2011Q4

REPORT INFORMATION
  Report Type: 
  Country: None (occurrence: None)
  Receive Date: 20111111
  Receipt Date: 20111102
  Transmission Date: 20120403
  Serious: Yes (Hospitalization)
  Sender: FDA-Public Use
  Company Number: US-JNJFOC-20111101066

PATIENT
  Sex: Female
  Weight: 62.6 kg

DRUGS (3)
  1. REMICADE [Suspect]
     Indication: COLITIS ULCERATIVE
     Route: 042
     Dates: start: 20040101, end: 20110101
  2. LO/OVRAL [Concomitant]
     Indication: CONTRACEPTION
     Route: 048
     Dates: start: 19950101
  3. ZOLOFT [Concomitant]
     Indication: ANXIETY
     Route: 048
     Dates: start: 20030101

REACTIONS (3)
  - BRAIN NEOPLASM BENIGN [None]
  - PANCREATITIS [None]
  - COLITIS ULCERATIVE [None]
